FAERS Safety Report 11679212 (Version 3)
Quarter: 2015Q4

REPORT INFORMATION
  Report Type: Spontaneous
  Country: US (occurrence: US)
  Receive Date: 20151027
  Receipt Date: 20151110
  Transmission Date: 20160304
  Serious: No
  Sender: FDA-Public Use
  Company Number: US-ELI_LILLY_AND_COMPANY-US200912001913

PATIENT
  Age: 53 Year
  Sex: Female

DRUGS (6)
  1. FORTEO [Suspect]
     Active Substance: TERIPARATIDE
     Dosage: 20 UG, QD
     Route: 065
     Dates: end: 201104
  2. NEXIUM [Concomitant]
     Active Substance: ESOMEPRAZOLE MAGNESIUM
  3. FORTEO [Suspect]
     Active Substance: TERIPARATIDE
     Dosage: 20 UG, DAILY (1/D)
     Dates: start: 20091130, end: 201004
  4. FORTEO [Suspect]
     Active Substance: TERIPARATIDE
     Indication: OSTEOPOROSIS
     Dosage: 20 UG, DAILY (1/D)
     Dates: start: 200911
  5. FORTEO [Suspect]
     Active Substance: TERIPARATIDE
     Dosage: 20 UG, DAILY (1/D)
     Dates: end: 20110630
  6. FORTEO [Suspect]
     Active Substance: TERIPARATIDE
     Dosage: 20 UG, QD
     Dates: start: 20110714

REACTIONS (21)
  - Palpitations [Unknown]
  - Pain in extremity [Recovering/Resolving]
  - Headache [Recovering/Resolving]
  - Injection site discomfort [Unknown]
  - Blood calcium increased [Not Recovered/Not Resolved]
  - Malaise [Recovering/Resolving]
  - Citric acid urine decreased [Unknown]
  - Influenza like illness [Recovered/Resolved]
  - Gastritis [Unknown]
  - Vitamin D decreased [Not Recovered/Not Resolved]
  - Injection site pain [Unknown]
  - Injection site bruising [Unknown]
  - Neck pain [Recovering/Resolving]
  - Intraocular pressure increased [Unknown]
  - Sinus disorder [Recovering/Resolving]
  - Fatigue [Recovering/Resolving]
  - Influenza like illness [Recovered/Resolved]
  - Anxiety [Unknown]
  - Asthenia [Recovering/Resolving]
  - pH urine increased [Unknown]
  - Fear [Unknown]

NARRATIVE: CASE EVENT DATE: 20091130
